FAERS Safety Report 10529837 (Version 1)
Quarter: 2014Q4

REPORT INFORMATION
  Report Type: Spontaneous
  Country: US (occurrence: None)
  Receive Date: 20141017
  Receipt Date: 20141017
  Transmission Date: 20150528
  Serious: Yes (Other)
  Sender: FDA-Public Use
  Company Number: DEP_02334_2014

PATIENT
  Age: 45 Year
  Sex: Female
  Weight: 50.8 kg

DRUGS (4)
  1. GRALISE [Suspect]
     Active Substance: GABAPENTIN
     Indication: OFF LABEL USE
     Dosage: DF
     Route: 048
     Dates: start: 2014, end: 2014
  2. GRALISE [Suspect]
     Active Substance: GABAPENTIN
     Indication: NEURALGIA
     Dosage: DF
     Route: 048
     Dates: start: 2014, end: 2014
  3. GABAPENTIN. [Suspect]
     Active Substance: GABAPENTIN
     Indication: NEURALGIA
     Dates: start: 20140601
  4. FLEXERIL [Concomitant]
     Active Substance: CYCLOBENZAPRINE HYDROCHLORIDE

REACTIONS (8)
  - Pharyngeal oedema [None]
  - Feeling abnormal [None]
  - Somnolence [None]
  - Impaired work ability [None]
  - Mental disorder [None]
  - Depressed level of consciousness [None]
  - Dry throat [None]
  - Sensation of foreign body [None]

NARRATIVE: CASE EVENT DATE: 2014
